FAERS Safety Report 12876654 (Version 1)
Quarter: 2016Q4

REPORT INFORMATION
  Report Type: Spontaneous
  Country: US (occurrence: US)
  Receive Date: 20161024
  Receipt Date: 20161024
  Transmission Date: 20170207
  Serious: Yes (Hospitalization)
  Sender: FDA-Public Use
  Company Number: None

PATIENT
  Age: 60 Year
  Sex: Male
  Weight: 61.2 kg

DRUGS (3)
  1. CEFTRIAXONE. [Suspect]
     Active Substance: CEFTRIAXONE
     Indication: LUNG ABSCESS
     Dosage: 2000 MG Q24 IV - PICC
     Route: 042
     Dates: start: 20160522, end: 20160627
  2. CEFTRIAXONE. [Suspect]
     Active Substance: CEFTRIAXONE
     Indication: PNEUMONIA
     Dosage: 2000 MG Q24 IV - PICC
     Route: 042
     Dates: start: 20160522, end: 20160627
  3. CEFTRIAXONE 2 GRAM VIAL APOTEX [Suspect]
     Active Substance: CEFTRIAXONE

REACTIONS (1)
  - Acute kidney injury [None]

NARRATIVE: CASE EVENT DATE: 20160629
